FAERS Safety Report 10484547 (Version 1)
Quarter: 2014Q3

REPORT INFORMATION
  Report Type: Spontaneous
  Country: GB (occurrence: GB)
  Receive Date: 20140930
  Receipt Date: 20140930
  Transmission Date: 20150326
  Serious: Yes (Other)
  Sender: FDA-Public Use
  Company Number: GB-PFIZER INC-2014264699

PATIENT
  Age: 78 Year
  Sex: Male
  Weight: 93 kg

DRUGS (6)
  1. SIMVASTATIN. [Concomitant]
     Active Substance: SIMVASTATIN
     Dosage: UNK
     Dates: start: 20140708, end: 20140910
  2. IBUPROFEN. [Concomitant]
     Active Substance: IBUPROFEN
     Dosage: UNK
     Dates: start: 20140528, end: 20140910
  3. PHENYTOIN SODIUM. [Suspect]
     Active Substance: PHENYTOIN SODIUM
     Dosage: UNK
     Dates: start: 20140813
  4. BISACODYL. [Concomitant]
     Active Substance: BISACODYL
     Dosage: UNK
     Dates: start: 20140708, end: 20140805
  5. EPILIM [Concomitant]
     Active Substance: VALPROATE SODIUM
     Dosage: UNK
     Dates: start: 20140708, end: 20140910
  6. PIRITON [Concomitant]
     Active Substance: CHLORPHENIRAMINE MALEATE
     Dosage: UNK
     Dates: start: 20140916

REACTIONS (1)
  - Erythrodermic psoriasis [Unknown]

NARRATIVE: CASE EVENT DATE: 20140916
